FAERS Safety Report 5533311-7 (Version None)
Quarter: 2007Q4

REPORT INFORMATION
  Report Type: 
  Country: None (occurrence: None)
  Receive Date: 20071204
  Receipt Date: 20071203
  Transmission Date: 20080405
  Serious: Yes (Other)
  Sender: FDA-Public Use
  Company Number: FR-ALLERGAN-0712651US

PATIENT
  Sex: Female
  Weight: 50 kg

DRUGS (3)
  1. BOTOX [Suspect]
     Indication: SALIVARY HYPERSECRETION
     Dosage: UNK, SINGLE
     Dates: start: 20071004, end: 20071004
  2. DOPAMINE HCL [Concomitant]
     Indication: PARKINSON'S DISEASE
     Dosage: 700 MG, QD
     Route: 048
     Dates: start: 20040101
  3. LEVOTHYROX [Concomitant]
     Indication: DRUG USE FOR UNKNOWN INDICATION
     Dosage: 60 UG, QD
     Route: 048

REACTIONS (2)
  - DYSPHAGIA [None]
  - DYSPHONIA [None]
